FAERS Safety Report 9759672 (Version 1)
Quarter: 2013Q4

REPORT INFORMATION
  Report Type: Spontaneous
  Country: US (occurrence: US)
  Receive Date: 20131216
  Receipt Date: 20131216
  Transmission Date: 20140711
  Serious: No
  Sender: FDA-Public Use
  Company Number: US-GILEAD-2010-0028593

PATIENT
  Sex: Female

DRUGS (8)
  1. LETAIRIS [Suspect]
     Indication: PULMONARY ARTERIAL HYPERTENSION
     Route: 048
     Dates: start: 20100316, end: 20100402
  2. SIMVASTATIN [Concomitant]
  3. CIPRO [Concomitant]
  4. METOPROLOL [Concomitant]
  5. LORAZEPAM [Concomitant]
  6. LEVOTHYROXINE [Concomitant]
  7. WARFARIN [Concomitant]
  8. LISINOPRIL [Concomitant]

REACTIONS (3)
  - Asthenia [Recovered/Resolved]
  - Abdominal discomfort [Recovered/Resolved]
  - Headache [Recovered/Resolved]
